FAERS Safety Report 24659087 (Version 1)
Quarter: 2024Q4

REPORT INFORMATION
  Report Type: Spontaneous
  Country: US (occurrence: None)
  Receive Date: 20241122
  Receipt Date: 20241122
  Transmission Date: 20250115
  Serious: Yes (Other)
  Sender: Public
  Company Number: None

PATIENT
  Age: 57 Year
  Sex: Female
  Weight: 63 kg

DRUGS (11)
  1. RECLAST [Suspect]
     Active Substance: ZOLEDRONIC ACID
     Indication: Osteoporosis
     Dates: start: 20241119
  2. FOSAMAX [Suspect]
     Active Substance: ALENDRONATE SODIUM
  3. PREVACID [Suspect]
     Active Substance: LANSOPRAZOLE
  4. CRESTOR [Concomitant]
     Active Substance: ROSUVASTATIN CALCIUM
  5. LECITHIN [Concomitant]
     Active Substance: LECITHIN
  6. Protect plus [Concomitant]
  7. VITAMIN C [Concomitant]
     Active Substance: ASCORBIC ACID
  8. Omega [Concomitant]
  9. Qunol [Concomitant]
  10. CALTRATE [Concomitant]
     Active Substance: CALCIUM CARBONATE
  11. Nutraphol [Concomitant]

REACTIONS (8)
  - Gastrointestinal disorder [None]
  - Nausea [None]
  - Vertigo [None]
  - Pyrexia [None]
  - Chills [None]
  - Myalgia [None]
  - Headache [None]
  - Gastritis [None]

NARRATIVE: CASE EVENT DATE: 20241120
